FAERS Safety Report 11736879 (Version 1)
Quarter: 2015Q4

REPORT INFORMATION
  Report Type: Spontaneous
  Country: US (occurrence: US)
  Receive Date: 20151110
  Receipt Date: 20151110
  Transmission Date: 20160304
  Serious: No
  Sender: FDA-Public Use
  Company Number: US-ELI_LILLY_AND_COMPANY-US201207003616

PATIENT
  Age: 71 Year
  Sex: Female

DRUGS (1)
  1. FORTEO [Suspect]
     Active Substance: TERIPARATIDE
     Dosage: UNK
     Dates: start: 20120612

REACTIONS (4)
  - Muscle tightness [Unknown]
  - Dizziness [Unknown]
  - Gastrooesophageal reflux disease [Unknown]
  - Nausea [Unknown]

NARRATIVE: CASE EVENT DATE: 201206
